FAERS Safety Report 9989486 (Version 2)
Quarter: 2014Q1

REPORT INFORMATION
  Report Type: Report from Study
  Country: US (occurrence: US)
  Receive Date: 20140310
  Receipt Date: 20140310
  Transmission Date: 20141002
  Serious: No
  Sender: FDA-Public Use
  Company Number: US-ABBVIE-13P-163-1102223-00

PATIENT
  Age: 68 Year
  Sex: Female

DRUGS (7)
  1. HUMIRA [Suspect]
     Indication: CROHN^S DISEASE
     Dosage: LOADING DOSE
     Route: 058
     Dates: start: 20130605, end: 20130605
  2. HUMIRA [Suspect]
     Route: 058
  3. ENTOCORT [Concomitant]
     Indication: CROHN^S DISEASE
     Dosage: 9MG DAILY
  4. CELEXA [Concomitant]
     Indication: ANXIETY
     Dosage: 20MG DAILY
  5. XANAX [Concomitant]
     Indication: ANXIETY
     Dosage: 0.5MG AT HS
  6. MULTIVITAMIN [Concomitant]
     Indication: VITAMIN SUPPLEMENTATION
  7. IMODIUM [Concomitant]
     Indication: CROHN^S DISEASE
     Dosage: 1-2 DAILY

REACTIONS (1)
  - Injection site bruising [Not Recovered/Not Resolved]
